FAERS Safety Report 10724185 (Version 3)
Quarter: 2015Q1

REPORT INFORMATION
  Report Type: Spontaneous
  Country: US (occurrence: US)
  Receive Date: 20150120
  Receipt Date: 20150331
  Transmission Date: 20150721
  Serious: Yes (Other)
  Sender: FDA-Public Use
  Company Number: US-TEVA-530096USA

PATIENT
  Sex: Female

DRUGS (13)
  1. AMITRIPTYLINE [Concomitant]
     Active Substance: AMITRIPTYLINE
  2. OMEPRAZOLE. [Concomitant]
     Active Substance: OMEPRAZOLE
  3. ABREVA [Concomitant]
     Active Substance: DOCOSANOL
  4. COPAXONE [Suspect]
     Active Substance: GLATIRAMER ACETATE
     Indication: MULTIPLE SCLEROSIS
     Route: 058
     Dates: start: 20140417
  5. DULOXETINE [Concomitant]
     Active Substance: DULOXETINE
  6. MODAFINIL. [Concomitant]
     Active Substance: MODAFINIL
  7. TRAVATAN [Concomitant]
     Active Substance: TRAVOPROST
  8. VITAMIN D3 [Concomitant]
     Active Substance: CHOLECALCIFEROL
  9. PROCTOZONE-HC [Concomitant]
  10. VITAMIN D [Concomitant]
     Active Substance: CHOLECALCIFEROL
  11. LORAZEPAM. [Concomitant]
     Active Substance: LORAZEPAM
  12. BACLOFEN. [Concomitant]
     Active Substance: BACLOFEN
  13. LEVOFLOXACIN. [Concomitant]
     Active Substance: LEVOFLOXACIN

REACTIONS (2)
  - Chest pain [Unknown]
  - Headache [Unknown]

NARRATIVE: CASE EVENT DATE: 2014
